FAERS Safety Report 6336598-6 (Version None)
Quarter: 2009Q3

REPORT INFORMATION
  Report Type: 
  Country: None (occurrence: None)
  Receive Date: 20090901
  Receipt Date: 20090820
  Transmission Date: 20100115
  Serious: Yes (Hospitalization, Disabling)
  Sender: FDA-Public Use
  Company Number: DE-JNJFOC-20090900118

PATIENT
  Sex: Male

DRUGS (4)
  1. TRAMADOL HCL [Suspect]
     Indication: PAIN
     Route: 048
  2. ZOPICLONE [Suspect]
     Indication: INSOMNIA
     Route: 048
  3. CETIRIZINE HCL [Concomitant]
  4. FORADIL [Concomitant]

REACTIONS (4)
  - FALL [None]
  - FEMORAL NECK FRACTURE [None]
  - ILLUSION [None]
  - SOMNAMBULISM [None]
